FAERS Safety Report 9376066 (Version 3)
Quarter: 2013Q4

REPORT INFORMATION
  Report Type: Spontaneous
  Country: US (occurrence: US)
  Receive Date: 20130629
  Receipt Date: 20131121
  Transmission Date: 20140711
  Serious: Yes (Life-Threatening, Hospitalization)
  Sender: FDA-Public Use
  Company Number: US-B.I. PHARMACEUTICALS,INC./RIDGEFIELD-2013-BI-18226BP

PATIENT
  Age: 71 Year
  Sex: Female
  Weight: 90.72 kg

DRUGS (11)
  1. PRADAXA [Suspect]
     Indication: ATRIAL FIBRILLATION
     Dosage: 300 MG
     Dates: start: 20101228, end: 20121212
  2. BUMEX [Concomitant]
     Dosage: 4 MG
     Dates: end: 201212
  3. BUMEX [Concomitant]
     Dosage: 2 MG
     Dates: end: 201212
  4. SIMVASTATIN [Concomitant]
     Dosage: 20 MG
  5. LISINOPRIL [Concomitant]
     Dosage: 40 MG
     Dates: end: 2012
  6. METOPROLOL SUCCINATE [Concomitant]
     Dosage: 25 MG
     Dates: start: 2010, end: 2012
  7. OMEPRAZOLE [Concomitant]
     Dosage: 40 MG
     Dates: start: 2005
  8. TAZTIA XT [Concomitant]
     Dosage: 120 MG
     Dates: start: 2009, end: 2012
  9. METFORMIN [Concomitant]
     Dosage: 1000 MG
     Dates: end: 2012
  10. FLECAINIDE [Concomitant]
     Indication: ATRIAL FIBRILLATION
     Dosage: 100 MG
     Dates: start: 2010, end: 2012
  11. DICYCLOMINE [Concomitant]
     Dosage: 40 MG

REACTIONS (7)
  - Gastrointestinal haemorrhage [Recovered/Resolved]
  - Acute myocardial infarction [Unknown]
  - Shock haemorrhagic [Unknown]
  - Liver injury [Unknown]
  - Coagulopathy [Unknown]
  - Renal failure [Recovered/Resolved]
  - Respiratory failure [Recovered/Resolved]
